FAERS Safety Report 5731333-4 (Version None)
Quarter: 2008Q2

REPORT INFORMATION
  Report Type: 
  Country: None (occurrence: None)
  Receive Date: 20080506
  Receipt Date: 20080424
  Transmission Date: 20081010
  Serious: Yes (Hospitalization)
  Sender: FDA-Public Use
  Company Number: 2007US002577

PATIENT
  Age: 4 Year
  Sex: Male
  Weight: 19.7 kg

DRUGS (12)
  1. PROGRAF [Suspect]
     Indication: RENAL TRANSPLANT
     Dates: start: 20060521
  2. DACLIZUMAB(DACLIZUMAB) [Suspect]
     Indication: RENAL TRANSPLANT
     Dosage: SEE IMAGE
     Route: 041
     Dates: start: 20060521, end: 20060521
  3. DACLIZUMAB(DACLIZUMAB) [Suspect]
     Indication: RENAL TRANSPLANT
     Dosage: SEE IMAGE
     Route: 041
     Dates: start: 20060605, end: 20060605
  4. DACLIZUMAB(DACLIZUMAB) [Suspect]
     Indication: RENAL TRANSPLANT
     Dosage: SEE IMAGE
     Route: 041
     Dates: start: 20060620, end: 20060620
  5. DACLIZUMAB(DACLIZUMAB) [Suspect]
     Indication: RENAL TRANSPLANT
     Dosage: SEE IMAGE
     Route: 041
     Dates: start: 20060703, end: 20060703
  6. DACLIZUMAB(DACLIZUMAB) [Suspect]
     Indication: RENAL TRANSPLANT
     Dosage: SEE IMAGE
     Route: 041
     Dates: start: 20060718, end: 20060718
  7. MUPIROCIN [Concomitant]
  8. NORVASC [Concomitant]
  9. REGLAN [Concomitant]
  10. OMEPRAZOLE [Concomitant]
  11. MIRALAX [Concomitant]
  12. KEFLEX [Concomitant]

REACTIONS (10)
  - CYTOMEGALOVIRUS ANTIGEN POSITIVE [None]
  - DYSPNOEA [None]
  - INFECTIOUS MONONUCLEOSIS [None]
  - POST TRANSPLANT LYMPHOPROLIFERATIVE DISORDER [None]
  - RASH [None]
  - SLEEP DISORDER [None]
  - SNORING [None]
  - TONSILLAR HYPERTROPHY [None]
  - TREATMENT NONCOMPLIANCE [None]
  - VIRAL DNA TEST POSITIVE [None]
